FAERS Safety Report 7698684-8 (Version None)
Quarter: 2011Q3

REPORT INFORMATION
  Report Type: 
  Country: None (occurrence: None)
  Receive Date: 20110818
  Receipt Date: 20110818
  Transmission Date: 20111222
  Serious: No
  Sender: FDA-Public Use
  Company Number: None

PATIENT
  Sex: Male

DRUGS (3)
  1. INCIVEK [Suspect]
  2. PEGASYS [Suspect]
     Indication: HEPATITIS C
     Dosage: 180 MG WEEKLY SQ
     Route: 058
     Dates: start: 20110728
  3. RIBASPHERE [Suspect]
     Dosage: RIBAPACK 1000 MG INCIVEK 750MG DAILY/TID FOR INCIVE PO
     Route: 048

REACTIONS (5)
  - INFLUENZA LIKE ILLNESS [None]
  - RASH [None]
  - DYSPNOEA EXERTIONAL [None]
  - DIZZINESS [None]
  - FATIGUE [None]
